FAERS Safety Report 4303592-6 (Version None)
Quarter: 2004Q1

REPORT INFORMATION
  Report Type: 
  Country: None (occurrence: None)
  Receive Date: 20040224
  Receipt Date: 20040213
  Transmission Date: 20041129
  Serious: Yes (Life-Threatening, Hospitalization)
  Sender: FDA-Public Use
  Company Number: 430002M04GBR

PATIENT
  Age: 57 Year
  Sex: Male

DRUGS (8)
  1. NOVANTRONE [Suspect]
     Indication: MULTIPLE SCLEROSIS
     Dosage: 20 MG, 1 IN 1 ONCE, INTRAVENOUS
     Route: 042
     Dates: start: 20031121, end: 20031121
  2. TOLTERODINE [Concomitant]
  3. ZOPICLONE [Concomitant]
  4. BECLOMETHASONE DIPROPIONATE [Concomitant]
  5. FLUTICASONE PROPIONATE [Concomitant]
  6. QUININE SULFATE [Concomitant]
  7. PAROXETINE HCL [Concomitant]
  8. NUTYLEY [Concomitant]

REACTIONS (10)
  - BLISTER [None]
  - DRUG INEFFECTIVE [None]
  - DRY SKIN [None]
  - ESCHERICHIA INFECTION [None]
  - LETHARGY [None]
  - LYMPHOPENIA [None]
  - MALAISE [None]
  - RASH GENERALISED [None]
  - SEPSIS [None]
  - WHITE BLOOD CELL COUNT DECREASED [None]
